FAERS Safety Report 5720545-1 (Version None)
Quarter: 2008Q2

REPORT INFORMATION
  Report Type: 
  Country: None (occurrence: None)
  Receive Date: 20080429
  Receipt Date: 20080424
  Transmission Date: 20081010
  Serious: Yes (Hospitalization)
  Sender: FDA-Public Use
  Company Number: DE-RANBAXY-2008RR-14534

PATIENT

DRUGS (5)
  1. FENOFIBRATE RANBAXY 160 MG COMPRIME [Suspect]
     Indication: PROPHYLAXIS
     Dosage: 250 MG, QD
  2. FENOFIBRATE RANBAXY 160 MG COMPRIME [Suspect]
     Dosage: 400 MG, QD
  3. BEXAROTENE [Suspect]
     Dosage: 525 MG, QD
  4. BEXAROTENE [Suspect]
     Dosage: 300 MG, QD
  5. VORINOSTAT [Suspect]
     Dosage: 200 MG, QD

REACTIONS (12)
  - ACUTE FEBRILE NEUTROPHILIC DERMATOSIS [None]
  - ANAEMIA [None]
  - BLOOD TRIGLYCERIDES INCREASED [None]
  - CHILLS [None]
  - FATIGUE [None]
  - GRANULOMA [None]
  - INFECTION [None]
  - PYREXIA [None]
  - SKIN NECROSIS [None]
  - STAPHYLOCOCCAL INFECTION [None]
  - SUPERINFECTION BACTERIAL [None]
  - VENOUS THROMBOSIS [None]
